FAERS Safety Report 6145523-2 (Version None)
Quarter: 2009Q2

REPORT INFORMATION
  Report Type: 
  Country: None (occurrence: None)
  Receive Date: 20090406
  Receipt Date: 20090406
  Transmission Date: 20091009
  Serious: Yes (Hospitalization, Other)
  Sender: FDA-Public Use
  Company Number: GB-PFIZER INC-2008062873

PATIENT
  Age: 21 Year
  Sex: Female

DRUGS (10)
  1. GABAPENTIN [Suspect]
     Indication: PAIN
  2. GABAPENTIN [Suspect]
     Indication: PAIN MANAGEMENT
  3. DIAZEPAM [Suspect]
     Indication: PAIN
  4. DIAZEPAM [Suspect]
     Indication: PAIN MANAGEMENT
  5. PARACETAMOL [Suspect]
     Indication: PAIN
  6. MORPHINE SULFATE [Suspect]
  7. FENTANYL [Suspect]
     Route: 062
  8. AMITRIPTYLINE [Suspect]
     Indication: PAIN
  9. OXYCODONE HCL [Suspect]
     Indication: PAIN
  10. OXYCODONE HCL [Suspect]
     Indication: PAIN MANAGEMENT

REACTIONS (2)
  - DRUG INEFFECTIVE [None]
  - SEDATION [None]
